FAERS Safety Report 17667209 (Version 1)
Quarter: 2020Q2

REPORT INFORMATION
  Report Type: Spontaneous
  Country: BR (occurrence: BR)
  Receive Date: 20200414
  Receipt Date: 20200414
  Transmission Date: 20200713
  Serious: Yes (Death, Hospitalization)
  Sender: FDA-Public Use
  Company Number: BR-ROCHE-2575091

PATIENT
  Sex: Male

DRUGS (1)
  1. TAMIFLU [Suspect]
     Active Substance: OSELTAMIVIR PHOSPHATE
     Indication: CORONAVIRUS INFECTION
     Route: 065
     Dates: start: 20200326

REACTIONS (3)
  - Coronavirus infection [Fatal]
  - Off label use [Unknown]
  - Intentional product use issue [Unknown]
